FAERS Safety Report 15808064 (Version 1)
Quarter: 2019Q1

REPORT INFORMATION
  Report Type: Spontaneous
  Country: US (occurrence: US)
  Receive Date: 20190110
  Receipt Date: 20190110
  Transmission Date: 20190417
  Serious: Yes (Death, Hospitalization)
  Sender: FDA-Public Use
  Company Number: US-BAYER-2019-007555

PATIENT
  Age: 50 Year
  Sex: Female

DRUGS (4)
  1. LORAZEPAM. [Suspect]
     Active Substance: LORAZEPAM
  2. PARACETAMOL [Suspect]
     Active Substance: ACETAMINOPHEN
     Route: 048
  3. OXYCODONE [Suspect]
     Active Substance: OXYCODONE
  4. ALPRAZOLAM. [Suspect]
     Active Substance: ALPRAZOLAM

REACTIONS (1)
  - Toxicity to various agents [Fatal]
